FAERS Safety Report 5397803-6 (Version None)
Quarter: 2007Q3

REPORT INFORMATION
  Report Type: 
  Country: None (occurrence: None)
  Receive Date: 20070723
  Receipt Date: 20070712
  Transmission Date: 20080115
  Serious: Yes (Hospitalization)
  Sender: FDA-Public Use
  Company Number: GXKR2007GB06025

PATIENT
  Sex: Male
  Weight: 3.5 kg

DRUGS (6)
  1. CLARITHROMYCIN [Suspect]
     Dosage: TRANSPLACENTAL
     Route: 064
  2. AMINOPHYLLIN [Suspect]
     Dosage: TRANSPLACENTAL
     Route: 064
  3. ATROVENT [Suspect]
     Dosage: TRANSPLACENTAL
     Route: 064
  4. HYDROCORTISONE [Suspect]
     Dosage: TRANSPLACENTAL
     Route: 064
  5. MAGNESIUM SULFATE [Suspect]
     Dosage: TRANSPLACENTAL
     Route: 064
  6. SALBUTAMOL         (SALBUTAMOL) [Suspect]
     Dosage: TRANSPLACENTAL
     Route: 064

REACTIONS (3)
  - DRUG EXPOSURE DURING PREGNANCY [None]
  - FOETAL DISTRESS SYNDROME [None]
  - TACHYCARDIA FOETAL [None]
